FAERS Safety Report 5710965-3 (Version None)
Quarter: 2008Q2

REPORT INFORMATION
  Report Type: 
  Country: None (occurrence: None)
  Receive Date: 20080421
  Receipt Date: 20080318
  Transmission Date: 20081010
  Serious: No
  Sender: FDA-Public Use
  Company Number: US-BAYER-200818050NA

PATIENT
  Age: 61 Year
  Sex: Female

DRUGS (6)
  1. AVELOX [Suspect]
     Indication: BRONCHIECTASIS
     Dosage: TOTAL DAILY DOSE: 400 MG  UNIT DOSE: 400 MG
     Route: 048
     Dates: start: 20080306, end: 20080312
  2. ADVAIR [Concomitant]
  3. ZYRTEC [Concomitant]
  4. PROVENTIL [Concomitant]
  5. NASONEX [Concomitant]
  6. PREDNISONE [Concomitant]

REACTIONS (1)
  - URTICARIA [None]
